FAERS Safety Report 13853247 (Version 1)
Quarter: 2017Q3

REPORT INFORMATION
  Report Type: Spontaneous
  Country: US (occurrence: US)
  Receive Date: 20170809
  Receipt Date: 20170809
  Transmission Date: 20171127
  Serious: Yes (Other)
  Sender: FDA-Public Use
  Company Number: None

PATIENT
  Age: 51 Year
  Sex: Female
  Weight: 58.5 kg

DRUGS (4)
  1. LOSARTAN POTASSIUM. [Suspect]
     Active Substance: LOSARTAN POTASSIUM
     Indication: BLOOD PRESSURE MEASUREMENT
     Dosage: ?          QUANTITY:1 TABLET(S);?
     Route: 048
     Dates: start: 20170201, end: 20170624
  2. MULTI VITAMINS [Concomitant]
     Active Substance: VITAMINS
  3. ADDERALL [Concomitant]
     Active Substance: AMPHETAMINE ASPARTATE\AMPHETAMINE SULFATE\DEXTROAMPHETAMINE SACCHARATE\DEXTROAMPHETAMINE SULFATE
  4. HYDROCHLOROTHIAZIDE. [Suspect]
     Active Substance: HYDROCHLOROTHIAZIDE
     Indication: BLOOD PRESSURE MEASUREMENT
     Dosage: ?          QUANTITY:1 TABLET(S);?
     Route: 048
     Dates: start: 20170201, end: 20170624

REACTIONS (9)
  - Lethargy [None]
  - Glomerular filtration rate decreased [None]
  - Raynaud^s phenomenon [None]
  - Blood pressure decreased [None]
  - Loss of consciousness [None]
  - Road traffic accident [None]
  - Restlessness [None]
  - Confusional state [None]
  - Chronic kidney disease [None]

NARRATIVE: CASE EVENT DATE: 20170622
